APPROVED DRUG PRODUCT: MERSALYL-THEOPHYLLINE
Active Ingredient: MERSALYL SODIUM; THEOPHYLLINE
Strength: 100MG/ML;50MG/ML
Dosage Form/Route: INJECTABLE;INJECTION
Application: A084875 | Product #001
Applicant: WATSON LABORATORIES INC
Approved: Approved Prior to Jan 1, 1982 | RLD: No | RS: No | Type: DISCN